FAERS Safety Report 4830871-6 (Version None)
Quarter: 2005Q4

REPORT INFORMATION
  Report Type: 
  Country: None (occurrence: None)
  Receive Date: 20051117
  Receipt Date: 20051110
  Transmission Date: 20060501
  Serious: Yes (Hospitalization, Other)
  Sender: FDA-Public Use
  Company Number: US-MERCK-0511USA01922

PATIENT
  Age: 74 Year
  Sex: Male
  Weight: 73 kg

DRUGS (2)
  1. VIOXX [Suspect]
     Indication: BACK PAIN
     Route: 048
     Dates: start: 20020504, end: 20031104
  2. SYNTHROID [Concomitant]
     Route: 065

REACTIONS (5)
  - ANKLE OPERATION [None]
  - BACK PAIN [None]
  - CORONARY ARTERY DISEASE [None]
  - INFECTION [None]
  - MYOCARDIAL INFARCTION [None]
